FAERS Safety Report 13107618 (Version 1)
Quarter: 2017Q1

REPORT INFORMATION
  Report Type: Report from Study
  Country: US (occurrence: US)
  Receive Date: 20170112
  Receipt Date: 20170112
  Transmission Date: 20170428
  Serious: No
  Sender: FDA-Public Use
  Company Number: US-AMGEN-USASL2017001158

PATIENT
  Sex: Male

DRUGS (1)
  1. ENBREL [Suspect]
     Active Substance: ETANERCEPT
     Indication: CHRONIC RECURRENT MULTIFOCAL OSTEOMYELITIS
     Dosage: UNK
     Route: 065

REACTIONS (1)
  - Off label use [Unknown]
